FAERS Safety Report 5241229-2 (Version None)
Quarter: 2007Q1

REPORT INFORMATION
  Report Type: 
  Country: None (occurrence: None)
  Receive Date: 20070215
  Receipt Date: 20070215
  Transmission Date: 20070707
  Serious: Yes (Hospitalization)
  Sender: FDA-Public Use
  Company Number: None

PATIENT
  Age: 74 Year
  Sex: Male

DRUGS (5)
  1. CETUXIMAB [Suspect]
     Indication: NEOPLASM MALIGNANT
     Dosage: 800 MG ONCE
  2. LORTAB [Concomitant]
  3. LORATADINE [Concomitant]
  4. METOPROLOL SUCCINATE [Concomitant]
  5. INDOMETHACIN [Concomitant]

REACTIONS (3)
  - BURNING SENSATION [None]
  - DYSPEPSIA [None]
  - HYPOTENSION [None]
